FAERS Safety Report 8407637-3 (Version None)
Quarter: 2012Q2

REPORT INFORMATION
  Report Type: 
  Country: None (occurrence: None)
  Receive Date: 20120529
  Receipt Date: 20071005
  Transmission Date: 20120825
  Serious: Yes (Death)
  Sender: FDA-Public Use
  Company Number: 02100-JPN-07-0511

PATIENT
  Age: 75 Year
  Sex: Male

DRUGS (12)
  1. AMLODIPINE BESYLATE [Concomitant]
  2. PLETAL [Suspect]
     Indication: CEREBRAL INFARCTION
     Dosage: 100 MG, BIG, ORAL
     Route: 048
     Dates: start: 20040608, end: 20070501
  3. TANATRIL (IMIDAPRIL HYDROCHLORIDE) [Concomitant]
  4. URSO 250 [Concomitant]
  5. SHOUSAIKOTOU (HERBAL EXTRACTS NOS) [Concomitant]
  6. TORSEMIDE [Concomitant]
  7. BAYCARON (MEFRUSIDE) [Concomitant]
  8. ALLOPURINOL [Concomitant]
  9. PROHEPARUM (CYSTEINE, CYANOCOBALAMIN, CHOLINE BITARTRATE, INOSITOL, LI [Concomitant]
  10. AMARYL [Concomitant]
  11. TAMSULOSIN HYDROCHLORIDE [Concomitant]
  12. RIZE (CLOTIAZEPAM) [Concomitant]

REACTIONS (5)
  - BUNDLE BRANCH BLOCK RIGHT [None]
  - ATRIOVENTRICULAR BLOCK [None]
  - RENAL FAILURE CHRONIC [None]
  - CONDITION AGGRAVATED [None]
  - BRADYCARDIA [None]
